FAERS Safety Report 9286612 (Version 1)
Quarter: 2013Q2

REPORT INFORMATION
  Report Type: Spontaneous
  Country: SK (occurrence: SK)
  Receive Date: 20130513
  Receipt Date: 20130513
  Transmission Date: 20140414
  Serious: Yes (Congenital Anomaly, Other)
  Sender: FDA-Public Use
  Company Number: PHHY2013SK046460

PATIENT
  Sex: Male

DRUGS (2)
  1. CO-TRIMOXAZOLE [Suspect]
     Dosage: MATERNAL DOSE 960 MG TWICE DAILY ON DAYS 14-19
     Route: 064
  2. LEVONORGESTREL [Suspect]
     Dosage: UNK
     Route: 015

REACTIONS (5)
  - Sirenomelia [Unknown]
  - Teratogenicity [Unknown]
  - Umbilical malformation [Unknown]
  - Foetal malformation [Unknown]
  - Foetal exposure during pregnancy [Unknown]
